FAERS Safety Report 20968034 (Version 1)
Quarter: 2022Q2

REPORT INFORMATION
  Report Type: Spontaneous
  Country: US (occurrence: US)
  Receive Date: 20220616
  Receipt Date: 20220616
  Transmission Date: 20220720
  Serious: Yes (Hospitalization)
  Sender: FDA-Public Use
  Company Number: US-ELI_LILLY_AND_COMPANY-US202206004065

PATIENT
  Age: 55 Year
  Sex: Male

DRUGS (2)
  1. IXEKIZUMAB [Interacting]
     Active Substance: IXEKIZUMAB
     Indication: Psoriatic arthropathy
     Dosage: UNK, UNKNOWN
     Route: 065
  2. BRODALUMAB [Interacting]
     Active Substance: BRODALUMAB
     Indication: Psoriatic arthropathy
     Dosage: UNK, UNKNOWN
     Route: 065

REACTIONS (2)
  - Meningitis cryptococcal [Unknown]
  - Drug interaction [Unknown]
